FAERS Safety Report 21723540 (Version 1)
Quarter: 2022Q4

REPORT INFORMATION
  Report Type: Spontaneous
  Country: US (occurrence: US)
  Receive Date: 20221213
  Receipt Date: 20221213
  Transmission Date: 20230113
  Serious: Yes (Other)
  Sender: FDA-Public Use
  Company Number: US-VERTEX PHARMACEUTICALS-2021-020382

PATIENT
  Age: 14 Year
  Sex: Male

DRUGS (3)
  1. TRIKAFTA [Interacting]
     Active Substance: ELEXACAFTOR\IVACAFTOR\TEZACAFTOR
     Indication: Cystic fibrosis
     Dosage: 100 MG ELEXA/ 50 MG TEZA/ 75 MG IVA, IN MORNING
     Route: 048
     Dates: start: 201911, end: 201912
  2. TRIKAFTA [Interacting]
     Active Substance: ELEXACAFTOR\IVACAFTOR\TEZACAFTOR
     Dosage: 200 MG ELEXA/ 100 MG TEZA/ 150 MG IVA, IN MORNING
     Route: 048
     Dates: start: 201912
  3. TACROLIMUS [Interacting]
     Active Substance: TACROLIMUS
     Indication: Immunosuppressant drug therapy
     Dosage: UNK
     Route: 065

REACTIONS (5)
  - Drug interaction [Unknown]
  - Blood bilirubin increased [Recovering/Resolving]
  - Aspartate aminotransferase increased [Recovering/Resolving]
  - Alanine aminotransferase increased [Recovering/Resolving]
  - Drug level changed [Unknown]

NARRATIVE: CASE EVENT DATE: 20190101
